FAERS Safety Report 4704919-3 (Version None)
Quarter: 2005Q3

REPORT INFORMATION
  Report Type: 
  Country: None (occurrence: None)
  Receive Date: 20050701
  Receipt Date: 20050530
  Transmission Date: 20060218
  Serious: Yes (Hospitalization)
  Sender: FDA-Public Use
  Company Number: PHHO2005IT08610

PATIENT
  Age: 58 Year
  Sex: Male

DRUGS (2)
  1. TRILEPTAL [Suspect]
     Indication: EPILEPSY
     Dosage: 2400MG
     Route: 048
     Dates: start: 20031207, end: 20031208
  2. TRILEPTAL [Suspect]
     Dosage: 1800
     Route: 048
     Dates: start: 20031209

REACTIONS (3)
  - FALL [None]
  - LUMBAR VERTEBRAL FRACTURE [None]
  - SEDATION [None]
